FAERS Safety Report 23758889 (Version 1)
Quarter: 2024Q2

REPORT INFORMATION
  Report Type: Spontaneous
  Country: US (occurrence: None)
  Receive Date: 20240418
  Receipt Date: 20240418
  Transmission Date: 20240715
  Serious: No
  Sender: FDA-Public Use
  Company Number: US-ROCHE-3337626

PATIENT
  Sex: Male
  Weight: 63.106 kg

DRUGS (2)
  1. AVASTIN [Suspect]
     Active Substance: BEVACIZUMAB
     Indication: Neovascular age-related macular degeneration
     Dosage: AROUND EVERY 4 MONTHS
     Route: 050
  2. SOTALOL [Concomitant]
     Active Substance: SOTALOL
     Indication: Atrial fibrillation
     Route: 048

REACTIONS (2)
  - Off label use [Unknown]
  - No adverse event [Unknown]
